FAERS Safety Report 7903833-X (Version None)
Quarter: 2011Q4

REPORT INFORMATION
  Report Type: 
  Country: None (occurrence: None)
  Receive Date: 20111109
  Receipt Date: 20111102
  Transmission Date: 20120403
  Serious: Yes (Hospitalization, Other)
  Sender: FDA-Public Use
  Company Number: FR-UCBSA-044909

PATIENT
  Age: 41 Year
  Sex: Male

DRUGS (5)
  1. KEPPRA [Suspect]
     Indication: CONVULSION
     Route: 048
     Dates: start: 20110804
  2. INTRON A [Concomitant]
     Dates: start: 20101025
  3. SOLU-MEDROL [Concomitant]
     Dates: start: 20110801
  4. MUPHORAN [Suspect]
     Indication: MALIGNANT MELANOMA
     Dates: start: 20110906
  5. ANTI BRAF [Concomitant]

REACTIONS (3)
  - THROMBOCYTOPENIA [None]
  - HYPOKINESIA [None]
  - NEUTROPENIA [None]
